FAERS Safety Report 9262490 (Version 1)
Quarter: 2013Q2

REPORT INFORMATION
  Report Type: Spontaneous
  Country: IT (occurrence: IT)
  Receive Date: 20130430
  Receipt Date: 20130430
  Transmission Date: 20140414
  Serious: Yes (Hospitalization)
  Sender: FDA-Public Use
  Company Number: IT-ACCORD-017361

PATIENT
  Age: 74 Year
  Sex: Female
  Weight: 65 kg

DRUGS (4)
  1. GEMCITABINE [Suspect]
     Indication: OVARIAN CANCER STAGE IV
     Dosage: 1000 MG/M2 (BSA)
     Route: 042
     Dates: start: 20130227, end: 20130306
  2. CARBOPLATIN [Suspect]
     Indication: OVARIAN CANCER STAGE IV
     Route: 042
     Dates: start: 20130227, end: 20130227
  3. MODURETIC [Concomitant]
     Dosage: ^5MG+ 50 MG TABLETS^ 20 TABLETS
  4. TENORMIN [Concomitant]
     Dosage: ^ 100 MG TABLETS^ 14 TABLETS BLISTER

REACTIONS (2)
  - Pancytopenia [Recovered/Resolved]
  - Off label use [Unknown]
